FAERS Safety Report 12290173 (Version 1)
Quarter: 2016Q2

REPORT INFORMATION
  Report Type: Spontaneous
  Country: ES (occurrence: ES)
  Receive Date: 20160421
  Receipt Date: 20160421
  Transmission Date: 20160815
  Serious: Yes (Other)
  Sender: FDA-Public Use
  Company Number: ES-009507513-1604ESP013613

PATIENT
  Age: 57 Year
  Sex: Female

DRUGS (1)
  1. ATOZET 10 MG/40 MG COMPRIMIDOS RECUBIERTOS CON PELICULA [Suspect]
     Active Substance: ATORVASTATIN CALCIUM\EZETIMIBE
     Dosage: 1/24H
     Route: 048
     Dates: start: 20160302

REACTIONS (3)
  - Dyspnoea [Unknown]
  - Pain in extremity [Unknown]
  - Palpitations [Unknown]

NARRATIVE: CASE EVENT DATE: 20160303
